FAERS Safety Report 8572986 (Version 7)
Quarter: 2013Q2

REPORT INFORMATION
  Report Type: Spontaneous
  Country: ES (occurrence: ES)
  Receive Date: 20120522
  Receipt Date: 20130506
  Transmission Date: 20140414
  Serious: Yes (Other)
  Sender: FDA-Public Use
  Company Number: ES-SANOFI-AVENTIS-2012SA033512

PATIENT
  Age: 63 Year
  Sex: Male

DRUGS (6)
  1. RIFINAH [Suspect]
     Indication: LUNG DISORDER
     Dosage: DOSE: 300+150 MG 2 TABLETS IN 24 HOURS
     Route: 048
     Dates: start: 20120111, end: 20120507
  2. RIFINAH [Suspect]
     Indication: TUBERCULOSIS
     Dosage: DOSE: 300+150 MG 2 TABLETS IN 24 HOURS
     Route: 048
     Dates: start: 20120111, end: 20120507
  3. BECLOMETHASONE DIPROPIONATE [Concomitant]
     Dates: start: 20120409
  4. VANDRAL [Concomitant]
     Dates: start: 20120409, end: 20120424
  5. VANDRAL [Concomitant]
     Dates: start: 20120425
  6. CURCUMA XANTHORRHIZA/OX BILE EXTRACT/VITAMINS NOS/MINERALS NOS/PANCREAS EXTRACT/CARICA PAPAYA/LIVER [Concomitant]

REACTIONS (8)
  - Toxic skin eruption [Recovered/Resolved]
  - Scab [Recovered/Resolved]
  - Wound [Recovered/Resolved]
  - Wound secretion [Recovered/Resolved]
  - Eczema [Recovered/Resolved]
  - Rash erythematous [Recovered/Resolved]
  - Pruritus [Recovered/Resolved]
  - Dermatitis [Recovered/Resolved]
